FAERS Safety Report 25002662 (Version 1)
Quarter: 2025Q1

REPORT INFORMATION
  Report Type: Spontaneous
  Country: CN (occurrence: CN)
  Receive Date: 20250224
  Receipt Date: 20250224
  Transmission Date: 20250409
  Serious: Yes (Death, Other)
  Sender: BOEHRINGER INGELHEIM
  Company Number: CN-BoehringerIngelheim-2025-BI-010156

PATIENT
  Age: 62 Year
  Sex: Male

DRUGS (13)
  1. AFATINIB [Suspect]
     Active Substance: AFATINIB
     Indication: EGFR gene mutation
     Dates: start: 20201106
  2. AFATINIB [Suspect]
     Active Substance: AFATINIB
     Indication: Lung adenocarcinoma
  3. OSIMERTINIB [Concomitant]
     Active Substance: OSIMERTINIB
     Indication: Product used for unknown indication
     Dates: start: 201906
  4. CARBOPLATIN [Concomitant]
     Active Substance: CARBOPLATIN
     Indication: Gene mutation
  5. CARBOPLATIN [Concomitant]
     Active Substance: CARBOPLATIN
     Indication: Lung adenocarcinoma
  6. PEMETREXED [Concomitant]
     Active Substance: PEMETREXED
     Indication: Gene mutation
  7. PEMETREXED [Concomitant]
     Active Substance: PEMETREXED
     Indication: Lung adenocarcinoma
  8. GEFITINIB [Concomitant]
     Active Substance: GEFITINIB
     Indication: Gene mutation
  9. GEFITINIB [Concomitant]
     Active Substance: GEFITINIB
     Indication: Lung adenocarcinoma
  10. OSIMERTINIB [Concomitant]
     Active Substance: OSIMERTINIB
     Indication: Gene mutation
     Dates: start: 201906
  11. OSIMERTINIB [Concomitant]
     Active Substance: OSIMERTINIB
     Indication: Lung adenocarcinoma
  12. BEVACIZUMAB [Concomitant]
     Active Substance: BEVACIZUMAB
     Indication: Gene mutation
  13. BEVACIZUMAB [Concomitant]
     Active Substance: BEVACIZUMAB
     Indication: Lung adenocarcinoma

REACTIONS (3)
  - Respiratory failure [Fatal]
  - Metastases to spine [Unknown]
  - Therapy partial responder [Unknown]

NARRATIVE: CASE EVENT DATE: 20210111
